FAERS Safety Report 17505510 (Version 1)
Quarter: 2020Q1

REPORT INFORMATION
  Report Type: Spontaneous
  Country: US (occurrence: US)
  Receive Date: 20200225
  Receipt Date: 20200225
  Transmission Date: 20200409
  Serious: Yes (Hospitalization)
  Sender: FDA-Public Use
  Company Number: None

PATIENT
  Age: 58 Year
  Sex: Male

DRUGS (1)
  1. LITHIUM (LITHIUM CARBONATE 300MG TAB, SA) [Suspect]
     Active Substance: LITHIUM CARBONATE
     Indication: BIPOLAR I DISORDER
     Dates: start: 20190530, end: 20200213

REACTIONS (4)
  - Toxic encephalopathy [None]
  - Toxicity to various agents [None]
  - Extra dose administered [None]
  - Ataxia [None]

NARRATIVE: CASE EVENT DATE: 20200216
